FAERS Safety Report 14475378 (Version 3)
Quarter: 2018Q4

REPORT INFORMATION
  Report Type: Spontaneous
  Country: US (occurrence: US)
  Receive Date: 20180201
  Receipt Date: 20181218
  Transmission Date: 20190204
  Serious: No
  Sender: FDA-Public Use
  Company Number: US-PFIZER INC-2018043671

PATIENT
  Age: 60 Year
  Sex: Male
  Weight: 70.3 kg

DRUGS (11)
  1. LYRICA [Suspect]
     Active Substance: PREGABALIN
     Indication: ANTIINFLAMMATORY THERAPY
     Dosage: 75 MG, THRICE DAILY
     Route: 048
     Dates: start: 2018, end: 201809
  2. LYRICA [Suspect]
     Active Substance: PREGABALIN
     Indication: BACK PAIN
  3. PERCOCET [Concomitant]
     Active Substance: ACETAMINOPHEN\OXYCODONE HYDROCHLORIDE
     Indication: BACK PAIN
     Dosage: 1 DF, THRICE DAILY
     Route: 048
     Dates: start: 2014
  4. LYRICA [Suspect]
     Active Substance: PREGABALIN
     Indication: MUSCULOSKELETAL STIFFNESS
     Dosage: 75 MG, 2X/DAY
     Route: 048
     Dates: start: 2018
  5. LYRICA [Suspect]
     Active Substance: PREGABALIN
     Indication: BACK DISORDER
  6. LYRICA [Suspect]
     Active Substance: PREGABALIN
     Indication: MUSCULOSKELETAL STIFFNESS
  7. OXYCODONE [Concomitant]
     Active Substance: OXYCODONE
     Dosage: UNK
  8. METHADONE [Concomitant]
     Active Substance: METHADONE HYDROCHLORIDE
     Indication: BACK PAIN
     Dosage: 10 MG, TWICE DAILY (EVERY 12 HOURS)
     Route: 048
     Dates: start: 2016
  9. LYRICA [Suspect]
     Active Substance: PREGABALIN
     Indication: BURNING SENSATION
  10. WARFARIN [Concomitant]
     Active Substance: WARFARIN
     Indication: PULMONARY EMBOLISM
     Dosage: 5 MG, ONCE DAILY (EVERY EVENING BETWEEN 5 AND 6 PM)
     Route: 048
  11. COUMADIN [Concomitant]
     Active Substance: WARFARIN SODIUM
     Dosage: 5 MG, DAILY, (TAKES ONE EVERYDAY BETWEEN 5 AND 6 O^CLOCK)
     Route: 048

REACTIONS (3)
  - Pain [Unknown]
  - Insomnia [Not Recovered/Not Resolved]
  - Burning sensation [Not Recovered/Not Resolved]

NARRATIVE: CASE EVENT DATE: 2018
